FAERS Safety Report 9580515 (Version 1)
Quarter: 2013Q3

REPORT INFORMATION
  Report Type: Spontaneous
  Country: US (occurrence: None)
  Receive Date: 20130916
  Receipt Date: 20130916
  Transmission Date: 20140515
  Serious: Yes (Other)
  Sender: FDA-Public Use
  Company Number: JPI-P-023283

PATIENT
  Age: 35 Year
  Sex: Female
  Weight: 68.04 kg

DRUGS (6)
  1. XYREM [Suspect]
     Indication: SOMNOLENCE
     Route: 048
     Dates: start: 201103
  2. SERTRALINE HYDROCHLORIDE [Concomitant]
  3. LEVOTHYROXINE SODIUM [Concomitant]
  4. AMPHETAMINE ASPARTATE; AMPHETAMINE SULFATE; DEXTROAMPHETAMINE SACCHARATE; DEXTROAMPHETAMINE SULFATE [Concomitant]
  5. TOPIRAMATE [Concomitant]
  6. ETHINYL ESTRADIOL; ETONOGESTREL [Concomitant]

REACTIONS (2)
  - Hypertension [None]
  - Condition aggravated [None]
